FAERS Safety Report 9668879 (Version 8)
Quarter: 2014Q2

REPORT INFORMATION
  Report Type: Report from Study
  Country: CA (occurrence: CA)
  Receive Date: 20131105
  Receipt Date: 20140623
  Transmission Date: 20141212
  Serious: Yes (Other)
  Sender: FDA-Public Use
  Company Number: PHHY2013CA111582

PATIENT
  Sex: Female

DRUGS (2)
  1. SANDOSTATIN (OCTREOTIDE ACETATE) [Suspect]
     Indication: NEUROENDOCRINE TUMOUR
     Dosage: UNK UG, ONCE/SINGLE
     Route: 058
     Dates: start: 20130920, end: 20130920
  2. SANDOSTATIN LAR [Suspect]
     Indication: NEUROENDOCRINE CARCINOMA
     Dosage: 30 MG, EVERY 28 DAYS
     Route: 030
     Dates: start: 20140219, end: 20140422

REACTIONS (10)
  - Neoplasm [Unknown]
  - Loss of consciousness [Unknown]
  - General physical health deterioration [Unknown]
  - Disease progression [Unknown]
  - Memory impairment [Unknown]
  - Malaise [Unknown]
  - Dizziness [Unknown]
  - Headache [Unknown]
  - Asthenia [Unknown]
  - Drug ineffective [Unknown]
